FAERS Safety Report 25424351 (Version 1)
Quarter: 2025Q2

REPORT INFORMATION
  Report Type: Spontaneous
  Country: US (occurrence: US)
  Receive Date: 20250611
  Receipt Date: 20250611
  Transmission Date: 20250716
  Serious: Yes (Hospitalization, Other)
  Sender: SANOFI AVENTIS
  Company Number: US-SA-2025SA163600

PATIENT
  Age: 48 Year
  Sex: Female

DRUGS (77)
  1. REZUROCK [Suspect]
     Active Substance: BELUMOSUDIL
     Indication: Chronic graft versus host disease
     Dosage: 200 MG, BID
     Route: 048
  2. PANTOPRAZOLE [Concomitant]
     Active Substance: PANTOPRAZOLE
  3. ACYCLOVIR [Concomitant]
     Active Substance: ACYCLOVIR
  4. ADVAIR HFA [Concomitant]
     Active Substance: FLUTICASONE PROPIONATE\SALMETEROL XINAFOATE
  5. ALBUTEROL [Concomitant]
     Active Substance: ALBUTEROL
  6. ALLOPURINOL [Concomitant]
     Active Substance: ALLOPURINOL
  7. AMOXICILLIN [Concomitant]
     Active Substance: AMOXICILLIN
  8. ATIVAN [Concomitant]
     Active Substance: LORAZEPAM
  9. BACTRIM [Concomitant]
     Active Substance: SULFAMETHOXAZOLE\TRIMETHOPRIM
  10. BENADRYL [Concomitant]
     Active Substance: DIPHENHYDRAMINE HYDROCHLORIDE
  11. BENZONATATE [Concomitant]
     Active Substance: BENZONATATE
  12. BUDESONIDE [Concomitant]
     Active Substance: BUDESONIDE
  13. CALAN [Concomitant]
     Active Substance: VERAPAMIL HYDROCHLORIDE
  14. CALCIUM [Concomitant]
     Active Substance: CALCIUM
  15. CEFDINIR [Concomitant]
     Active Substance: CEFDINIR
  16. CELLCEPT [Concomitant]
     Active Substance: MYCOPHENOLATE MOFETIL
  17. CLOBETASOL [Concomitant]
     Active Substance: CLOBETASOL
  18. COLACE [Concomitant]
     Active Substance: DOCUSATE SODIUM
  19. CRESEMBA [Concomitant]
     Active Substance: ISAVUCONAZONIUM SULFATE
  20. VITAMIN C [Concomitant]
     Active Substance: ASCORBIC ACID
  21. CYMBALTA [Concomitant]
     Active Substance: DULOXETINE HYDROCHLORIDE
  22. VITAMINS [Concomitant]
     Active Substance: VITAMINS
  23. DESONIDE [Concomitant]
     Active Substance: DESONIDE
  24. DEXAMETHASONE [Concomitant]
     Active Substance: DEXAMETHASONE
  25. DULOXETINE [Concomitant]
     Active Substance: DULOXETINE
  26. ELIQUIS [Concomitant]
     Active Substance: APIXABAN
  27. ENOXAPARIN [Concomitant]
     Active Substance: ENOXAPARIN
  28. ESTRACE [Concomitant]
     Active Substance: ESTRADIOL
  29. FLUCONAZOLE [Concomitant]
     Active Substance: FLUCONAZOLE
  30. FLUOCINONIDE [Concomitant]
     Active Substance: FLUOCINONIDE
  31. FOLIC ACID [Concomitant]
     Active Substance: FOLIC ACID
  32. FUROSEMIDE [Concomitant]
     Active Substance: FUROSEMIDE
  33. GABAPENTIN [Concomitant]
     Active Substance: GABAPENTIN
  34. GRANISETRON [Concomitant]
     Active Substance: GRANISETRON
  35. HYDROXYZINE [Concomitant]
     Active Substance: HYDROXYZINE HYDROCHLORIDE
  36. ALBUTEROL\IPRATROPIUM [Concomitant]
     Active Substance: ALBUTEROL\IPRATROPIUM
  37. JAKAFI [Concomitant]
     Active Substance: RUXOLITINIB
  38. VITAMIN D3 [Concomitant]
     Active Substance: CHOLECALCIFEROL
  39. LASIX [Concomitant]
     Active Substance: FUROSEMIDE
  40. LEVOFLOXACIN [Concomitant]
     Active Substance: LEVOFLOXACIN
  41. LEVOTHYROXINE [Concomitant]
     Active Substance: LEVOTHYROXINE
  42. LIDOCAINE [Concomitant]
     Active Substance: LIDOCAINE
  43. LOKELMA [Concomitant]
     Active Substance: SODIUM ZIRCONIUM CYCLOSILICATE
  44. LOMOTIL [Concomitant]
     Active Substance: ATROPINE SULFATE\DIPHENOXYLATE HYDROCHLORIDE
  45. LOPERAMIDE [Concomitant]
     Active Substance: LOPERAMIDE
  46. LUPRON [Concomitant]
     Active Substance: LEUPROLIDE ACETATE
  47. LYRICA [Concomitant]
     Active Substance: PREGABALIN
  48. MAALOX ANTACID [Concomitant]
     Active Substance: ALUMINUM HYDROXIDE\DIMETHICONE\MAGNESIUM HYDROXIDE
  49. MAGNESIUM [Concomitant]
     Active Substance: MAGNESIUM
  50. MELATONIN [Concomitant]
     Active Substance: MELATONIN
  51. MONTELUKAST [Concomitant]
     Active Substance: MONTELUKAST
  52. MS CONTIN [Concomitant]
     Active Substance: MORPHINE SULFATE
  53. MUCINEX [Concomitant]
     Active Substance: GUAIFENESIN
  54. MYCOPHENOLIC ACID [Concomitant]
     Active Substance: MYCOPHENOLIC ACID
  55. NARCAN [Concomitant]
     Active Substance: NALOXONE HYDROCHLORIDE
  56. NYSTATIN [Concomitant]
     Active Substance: NYSTATIN
  57. OXYCODONE [Concomitant]
     Active Substance: OXYCODONE
  58. PENICILLIN [Concomitant]
     Active Substance: PENICILLIN
  59. PENTAMIDINE [Concomitant]
     Active Substance: PENTAMIDINE
  60. POSACONAZOLE [Concomitant]
     Active Substance: POSACONAZOLE
  61. POTASSIUM CHLORIDE [Concomitant]
     Active Substance: POTASSIUM CHLORIDE
  62. PREDNISONE [Concomitant]
     Active Substance: PREDNISONE
  63. PREMARIN [Concomitant]
     Active Substance: ESTROGENS, CONJUGATED
  64. PREVYMIS [Concomitant]
     Active Substance: LETERMOVIR
  65. RAPAMUNE [Concomitant]
     Active Substance: SIROLIMUS
  66. RESTASIS [Concomitant]
     Active Substance: CYCLOSPORINE
  67. ROBITUSSIN (GUAIFENESIN) [Concomitant]
     Active Substance: GUAIFENESIN
  68. SIROLIMUS [Concomitant]
     Active Substance: SIROLIMUS
  69. SODIUM CHLORIDE [Concomitant]
     Active Substance: SODIUM CHLORIDE
  70. TACROLIMUS [Concomitant]
     Active Substance: TACROLIMUS
  71. TOBRAMYCIN [Concomitant]
     Active Substance: TOBRAMYCIN
  72. TRAZODONE [Concomitant]
     Active Substance: TRAZODONE HYDROCHLORIDE
  73. URSODIOL [Concomitant]
     Active Substance: URSODIOL
  74. VALACYCLOVIR [Concomitant]
     Active Substance: VALACYCLOVIR HYDROCHLORIDE
  75. VERAPAMIL [Concomitant]
     Active Substance: VERAPAMIL HYDROCHLORIDE
  76. VITAMIN D2 [Concomitant]
     Active Substance: ERGOCALCIFEROL
  77. ZYRTEC [Concomitant]
     Active Substance: CETIRIZINE HYDROCHLORIDE

REACTIONS (1)
  - Pneumonia [Recovering/Resolving]
